FAERS Safety Report 9397869 (Version 2)
Quarter: 2013Q3

REPORT INFORMATION
  Report Type: Report from Study
  Country: CA (occurrence: CA)
  Receive Date: 20130712
  Receipt Date: 20130725
  Transmission Date: 20140515
  Serious: Yes (Other)
  Sender: FDA-Public Use
  Company Number: PHHY2013CA073193

PATIENT
  Age: 12 Year
  Sex: Female

DRUGS (3)
  1. ILARIS [Suspect]
     Indication: OFF LABEL USE
     Dosage: 150 MG, QMO
     Route: 058
     Dates: start: 20130603
  2. ILARIS [Suspect]
     Dosage: 150 MG, A MONTH
     Route: 058
     Dates: start: 20130702
  3. LEFLUNOMIDE [Concomitant]
     Dosage: 10 MG, QD

REACTIONS (2)
  - Arthritis [Recovering/Resolving]
  - Upper respiratory tract infection [Recovered/Resolved]
